FAERS Safety Report 22078005 (Version 1)
Quarter: 2023Q1

REPORT INFORMATION
  Report Type: Spontaneous
  Country: US (occurrence: None)
  Receive Date: 20230308
  Receipt Date: 20230308
  Transmission Date: 20230418
  Serious: Yes (Life-Threatening, Other)
  Sender: FDA-Public Use
  Company Number: None

PATIENT
  Age: 53 Year
  Sex: Female
  Weight: 135 kg

DRUGS (11)
  1. DEFINITY [Suspect]
     Active Substance: PERFLUTREN
     Indication: Electrocardiogram
     Dates: start: 20221201, end: 20221201
  2. CARVEDILOL [Concomitant]
     Active Substance: CARVEDILOL
  3. FUROSEMIDE [Concomitant]
     Active Substance: FUROSEMIDE
  4. LISINOPRIL [Concomitant]
     Active Substance: LISINOPRIL
  5. BEETS [Concomitant]
  6. COENZYME Q10 [Concomitant]
     Active Substance: DIETARY SUPPLEMENT\UBIDECARENONE
  7. FISH OIL [Concomitant]
     Active Substance: FISH OIL
  8. VITAMIN B [Concomitant]
     Active Substance: VITAMIN B
  9. VITAMIN D3 [Concomitant]
     Active Substance: CHOLECALCIFEROL
  10. SELENIUM [Concomitant]
     Active Substance: SELENIUM
  11. HERBALS [Concomitant]
     Active Substance: HERBALS

REACTIONS (12)
  - Throat tightness [None]
  - Infusion related reaction [None]
  - Chest pain [None]
  - Back pain [None]
  - Lacrimation increased [None]
  - Rhinorrhoea [None]
  - Cough [None]
  - Oropharyngeal pain [None]
  - Breath sounds abnormal [None]
  - Tinnitus [None]
  - Night blindness [None]
  - Neuralgia [None]

NARRATIVE: CASE EVENT DATE: 20221201
